FAERS Safety Report 13527547 (Version 2)
Quarter: 2017Q2

REPORT INFORMATION
  Report Type: Spontaneous
  Country: DK (occurrence: DK)
  Receive Date: 20170509
  Receipt Date: 20170510
  Transmission Date: 20170830
  Serious: Yes (Other)
  Sender: FDA-Public Use
  Company Number: DK-GLAXOSMITHKLINE-DK2017061748

PATIENT
  Sex: Female

DRUGS (4)
  1. NICORETTE [Suspect]
     Active Substance: NICOTINE
     Indication: SMOKING CESSATION THERAPY
     Dosage: 2 MG, 6D
     Route: 065
  2. NICORETTE [Suspect]
     Active Substance: NICOTINE
     Indication: SMOKING CESSATION THERAPY
     Dosage: 2 MG, 6D
     Route: 065
  3. NICORETTE [Suspect]
     Active Substance: NICOTINE
     Dosage: 2 MG, QID
     Route: 065
  4. NICORETTE [Suspect]
     Active Substance: NICOTINE
     Dosage: 2 MG, QID
     Route: 065

REACTIONS (5)
  - Incorrect drug administration duration [Unknown]
  - Diarrhoea [Unknown]
  - Nicotine dependence [Unknown]
  - Cystitis [Unknown]
  - Drug use disorder [Unknown]
